FAERS Safety Report 4762402-3 (Version None)
Quarter: 2005Q3

REPORT INFORMATION
  Report Type: 
  Country: None (occurrence: None)
  Receive Date: 20050901
  Receipt Date: 20050624
  Transmission Date: 20060218
  Serious: Yes (Other)
  Sender: FDA-Public Use
  Company Number: 19218

PATIENT
  Age: 61 Year
  Sex: Male

DRUGS (1)
  1. PACLITAXEL [Suspect]
     Dosage: IV
     Route: 042
     Dates: start: 20050624

REACTIONS (1)
  - EXTRAVASATION [None]
